FAERS Safety Report 23708049 (Version 1)
Quarter: 2024Q2

REPORT INFORMATION
  Report Type: Spontaneous
  Country: CN (occurrence: CN)
  Receive Date: 20240404
  Receipt Date: 20240404
  Transmission Date: 20240715
  Serious: Yes (Other)
  Sender: FDA-Public Use
  Company Number: CN-AstraZeneca-2024-170135

PATIENT

DRUGS (2)
  1. GOSERELIN [Suspect]
     Active Substance: GOSERELIN
     Indication: Endometriosis
     Dosage: 3.6 MILLIGRAM, MONTHLY
     Route: 058
     Dates: start: 20231121, end: 20240213
  2. ZOLADEX [Suspect]
     Active Substance: GOSERELIN ACETATE
     Indication: Endometriosis
     Dosage: UNK
     Route: 065

REACTIONS (5)
  - Rash erythematous [Recovering/Resolving]
  - Sleep disorder [Unknown]
  - Skin exfoliation [Unknown]
  - Papule [Unknown]
  - Rash pruritic [Unknown]

NARRATIVE: CASE EVENT DATE: 20240212
